FAERS Safety Report 4724386-3 (Version None)
Quarter: 2005Q3

REPORT INFORMATION
  Report Type: 
  Country: None (occurrence: None)
  Receive Date: 20050720
  Receipt Date: 20050720
  Transmission Date: 20060218
  Serious: Yes (Hospitalization)
  Sender: FDA-Public Use
  Company Number: None

PATIENT
  Age: 57 Year
  Sex: Male
  Weight: 90.7194 kg

DRUGS (2)
  1. TERAZOSIN 10 MG [Suspect]
     Indication: BENIGN PROSTATIC HYPERPLASIA
     Dosage: DAILY
  2. TERAZOSIN 10 MG [Suspect]
     Indication: HYPERTENSION
     Dosage: DAILY

REACTIONS (2)
  - TREATMENT NONCOMPLIANCE [None]
  - UNEVALUABLE EVENT [None]
